FAERS Safety Report 5851385-0 (Version None)
Quarter: 2008Q3

REPORT INFORMATION
  Report Type: 
  Country: None (occurrence: None)
  Receive Date: 20080731
  Receipt Date: 20080414
  Transmission Date: 20090109
  Serious: No
  Sender: FDA-Public Use
  Company Number: US200804003953

PATIENT
  Age: 54 Year
  Sex: Female
  Weight: 86.2 kg

DRUGS (4)
  1. BYETTA [Suspect]
     Indication: POLYCYSTIC OVARIES
     Dosage: 5 UG, 2/D, SUBCUTANEOUS : 10 UG, 2/D, SUBCUTANEOUS
     Route: 058
     Dates: start: 20070401, end: 20070501
  2. BYETTA [Suspect]
     Indication: POLYCYSTIC OVARIES
     Dosage: 5 UG, 2/D, SUBCUTANEOUS : 10 UG, 2/D, SUBCUTANEOUS
     Route: 058
     Dates: start: 20070501
  3. EXENATIDE PEN, DISPOSABLE DEVICE ((EXENATIDE PEN) PEN,DISPOSABLE [Concomitant]
  4. GLUCOPHAGE [Concomitant]

REACTIONS (3)
  - DECREASED APPETITE [None]
  - HEADACHE [None]
  - HUNGER [None]
